FAERS Safety Report 16529468 (Version 1)
Quarter: 2019Q3

REPORT INFORMATION
  Report Type: Spontaneous
  Country: GB (occurrence: GB)
  Receive Date: 20190704
  Receipt Date: 20190704
  Transmission Date: 20191004
  Serious: Yes (Other)
  Sender: FDA-Public Use
  Company Number: GB-TEVA-2019-GB-1072763

PATIENT
  Age: 72 Year
  Sex: Male
  Weight: 87 kg

DRUGS (3)
  1. AMLODIPINE [Suspect]
     Active Substance: AMLODIPINE BESYLATE
     Dosage: 10MG PER DAY
     Dates: start: 20180515
  2. ATORVASTATIN [Concomitant]
     Active Substance: ATORVASTATIN
     Dosage: 1DOSAGE FORM PER DAY
     Dates: start: 20190528
  3. LOSARTAN. [Concomitant]
     Active Substance: LOSARTAN
     Dosage: 1DOSAGE FORM PER DAY
     Dates: start: 20190606

REACTIONS (1)
  - Gingival swelling [Unknown]
